FAERS Safety Report 7322545-7 (Version None)
Quarter: 2011Q1

REPORT INFORMATION
  Report Type: 
  Country: None (occurrence: None)
  Receive Date: 20110215
  Receipt Date: 20110127
  Transmission Date: 20110831
  Serious: Yes (Other)
  Sender: FDA-Public Use
  Company Number: 2010SP048417

PATIENT
  Age: 26 Year
  Sex: Female
  Weight: 51 kg

DRUGS (4)
  1. GRACIAL (DESOGESTREL/ETHINYLESTRADIOL /00570801/) [Suspect]
     Indication: CONTRACEPTION
     Dosage: PO
     Route: 048
     Dates: start: 20040101
  2. NOVAMOX (AMOXICILLIN +CLAVULANIC ACID) (SPEKTRAMOX /02043401/) [Suspect]
     Indication: SINUSITIS
     Dosage: PO
     Route: 048
     Dates: start: 20100908
  3. MINOCICLINE (MINOCYCLINE) [Suspect]
     Indication: PRODUCT USED FOR UNKNOWN INDICATION
     Dates: start: 20101109
  4. NORFLOXACIN [Suspect]
     Indication: URINARY TRACT INFECTION
     Dosage: PO
     Route: 048
     Dates: start: 20110126

REACTIONS (5)
  - DRUG INTERACTION [None]
  - PNEUMONIA [None]
  - SINUSITIS [None]
  - URINARY TRACT INFECTION [None]
  - INAPPROPRIATE SCHEDULE OF DRUG ADMINISTRATION [None]
